FAERS Safety Report 25735889 (Version 1)
Quarter: 2025Q3

REPORT INFORMATION
  Report Type: Spontaneous
  Country: CN (occurrence: CN)
  Receive Date: 20250828
  Receipt Date: 20250828
  Transmission Date: 20251020
  Serious: Yes (Life-Threatening, Other)
  Sender: MERCK SHARP & DOHME LLC
  Company Number: CN-009507513-2323728

PATIENT
  Age: 62 Year
  Sex: Female

DRUGS (1)
  1. INVANZ [Suspect]
     Active Substance: ERTAPENEM SODIUM
     Indication: Anti-infective therapy
     Route: 041
     Dates: start: 20250612, end: 20250612

REACTIONS (3)
  - Dyspnoea [Recovering/Resolving]
  - Colon cancer [Unknown]
  - Face oedema [Unknown]

NARRATIVE: CASE EVENT DATE: 20250601
